FAERS Safety Report 19184329 (Version 3)
Quarter: 2022Q1

REPORT INFORMATION
  Report Type: Spontaneous
  Country: US (occurrence: US)
  Receive Date: 20210427
  Receipt Date: 20220201
  Transmission Date: 20220423
  Serious: Yes (Hospitalization, Other)
  Sender: FDA-Public Use
  Company Number: US-GLAXOSMITHKLINE-US2021GSK091862

PATIENT
  Age: 49 Year
  Sex: Male

DRUGS (7)
  1. RANITIDINE HYDROCHLORIDE [Suspect]
     Active Substance: RANITIDINE HYDROCHLORIDE
     Indication: Product used for unknown indication
     Dosage: UNK
     Route: 065
  2. ZANTAC [Suspect]
     Active Substance: RANITIDINE HYDROCHLORIDE
     Indication: Gastrooesophageal reflux disease
     Dosage: 150 MG, QD
     Route: 065
     Dates: start: 201501, end: 201811
  3. ZANTAC [Suspect]
     Active Substance: RANITIDINE HYDROCHLORIDE
     Indication: Gastrooesophageal reflux disease
  4. RANITIDINE [Suspect]
     Active Substance: RANITIDINE
     Indication: Gastrooesophageal reflux disease
     Dosage: 150 MG, QD
     Route: 065
     Dates: start: 201501, end: 201811
  5. RANITIDINE [Suspect]
     Active Substance: RANITIDINE
     Indication: Gastrooesophageal reflux disease
  6. RANITIDINE [Suspect]
     Active Substance: RANITIDINE
     Indication: Gastrooesophageal reflux disease
     Dosage: 150 MG, QD
     Route: 065
     Dates: start: 201501, end: 201811
  7. RANITIDINE [Suspect]
     Active Substance: RANITIDINE
     Indication: Gastrooesophageal reflux disease

REACTIONS (13)
  - Gastric cancer [Unknown]
  - Adenocarcinoma gastric [Unknown]
  - Neoplasm malignant [Unknown]
  - Gastric ulcer [Unknown]
  - Gastric mucosal hypertrophy [Unknown]
  - Upper gastrointestinal haemorrhage [Unknown]
  - Barrett^s oesophagus [Unknown]
  - Helicobacter gastritis [Unknown]
  - Intestinal metaplasia [Unknown]
  - Chronic gastritis [Unknown]
  - Oesophagitis [Unknown]
  - Ulcerative gastritis [Unknown]
  - Gastric disorder [Unknown]

NARRATIVE: CASE EVENT DATE: 20181205
